FAERS Safety Report 15859658 (Version 1)
Quarter: 2019Q1

REPORT INFORMATION
  Report Type: Spontaneous
  Country: JP (occurrence: JP)
  Receive Date: 20190123
  Receipt Date: 20190123
  Transmission Date: 20190417
  Serious: Yes (Other)
  Sender: FDA-Public Use
  Company Number: JP-BAYER-2019-013416

PATIENT
  Age: 49 Year
  Sex: Male

DRUGS (6)
  1. STIVARGA [Suspect]
     Active Substance: REGORAFENIB
     Indication: TUMOUR EMBOLISM
     Dosage: UNK
     Dates: start: 201711
  2. LIPIODOL ULTRA-FLUIDE [Concomitant]
     Active Substance: ETHIODIZED OIL
     Dosage: UNK
     Dates: start: 201702
  3. STIVARGA [Suspect]
     Active Substance: REGORAFENIB
     Indication: METASTASES TO LUNG
  4. STIVARGA [Suspect]
     Active Substance: REGORAFENIB
     Indication: HEPATOCELLULAR CARCINOMA
  5. IA-CALL [Concomitant]
     Active Substance: CISPLATIN
     Dosage: UNK
     Dates: start: 201702
  6. 5-FU KYOWA [Concomitant]
     Active Substance: FLUOROURACIL
     Dosage: UNK
     Dates: start: 201702

REACTIONS (2)
  - Hyperthyroidism [None]
  - Drug ineffective [None]
